FAERS Safety Report 8228406-3 (Version None)
Quarter: 2012Q1

REPORT INFORMATION
  Report Type: 
  Country: None (occurrence: None)
  Receive Date: 20120322
  Receipt Date: 20110722
  Transmission Date: 20120608
  Serious: No
  Sender: FDA-Public Use
  Company Number: US-BRISTOL-MYERS SQUIBB COMPANY-15919442

PATIENT
  Age: 29 Year
  Sex: Female

DRUGS (1)
  1. ERBITUX [Suspect]
     Indication: RECTAL CANCER
     Dosage: INFUSION-4.
     Dates: start: 20110311

REACTIONS (1)
  - HEADACHE [None]
